FAERS Safety Report 5764592-2 (Version None)
Quarter: 2008Q2

REPORT INFORMATION
  Report Type: 
  Country: None (occurrence: None)
  Receive Date: 20080610
  Receipt Date: 20080604
  Transmission Date: 20081010
  Serious: Yes (Death)
  Sender: FDA-Public Use
  Company Number: US-PFIZER INC-2008047539

PATIENT
  Sex: Male

DRUGS (3)
  1. GLUCOTROL [Suspect]
  2. ALDACTONE [Suspect]
  3. ACCUPRIL [Suspect]

REACTIONS (1)
  - DEATH [None]
